FAERS Safety Report 21486168 (Version 2)
Quarter: 2022Q4

REPORT INFORMATION
  Report Type: Spontaneous
  Country: FR (occurrence: FR)
  Receive Date: 20221020
  Receipt Date: 20221104
  Transmission Date: 20230113
  Serious: Yes (Other)
  Sender: FDA-Public Use
  Company Number: FR-TEVA-2022-FR-2817583

PATIENT
  Age: 6 Decade
  Sex: Male

DRUGS (9)
  1. CARBOPLATIN [Suspect]
     Active Substance: CARBOPLATIN
     Indication: Squamous cell carcinoma of skin
     Dosage: COMBINED CARBOPLATIN AND CETUXIMAB THERAPY
     Route: 065
  2. MYCOPHENOLATE MOFETIL [Suspect]
     Active Substance: MYCOPHENOLATE MOFETIL
     Indication: Immunosuppression
     Dosage: 1 GRAM DAILY;
     Route: 065
  3. EVEROLIMUS [Suspect]
     Active Substance: EVEROLIMUS
     Indication: Immunosuppression
     Route: 065
  4. TACROLIMUS [Suspect]
     Active Substance: TACROLIMUS
     Indication: Immunosuppression
     Dosage: 2 MILLIGRAM DAILY;
     Route: 065
  5. TACROLIMUS [Suspect]
     Active Substance: TACROLIMUS
     Dosage: REDUCTION OF TACROLIMUS DOSE
     Route: 065
  6. TACROLIMUS [Suspect]
     Active Substance: TACROLIMUS
     Dosage: UP-TITRATION OF TACROLIMUS
     Route: 065
  7. CETUXIMAB [Suspect]
     Active Substance: CETUXIMAB
     Indication: Squamous cell carcinoma of skin
     Dosage: COMBINED CARBOPLATIN AND CETUXIMAB THERAPY
     Route: 065
  8. CETUXIMAB [Suspect]
     Active Substance: CETUXIMAB
     Dosage: MAINTAINED AS MONOTHERAPY
     Route: 065
  9. CETUXIMAB [Suspect]
     Active Substance: CETUXIMAB
     Dosage: CETUXIMAB WAS STOPPED AFTER 23 CYCLES
     Route: 065

REACTIONS (3)
  - Squamous cell carcinoma of skin [Recovered/Resolved]
  - Thrombocytopenia [Unknown]
  - Drug ineffective [Unknown]
